FAERS Safety Report 16979161 (Version 1)
Quarter: 2019Q4

REPORT INFORMATION
  Report Type: Other
  Country: US (occurrence: US)
  Receive Date: 20191031
  Receipt Date: 20191031
  Transmission Date: 20200122
  Serious: Yes (Hospitalization, Other)
  Sender: FDA-Public Use
  Company Number: US-AVONDALE PHARMACEUTICALS, LLC-2076259

PATIENT
  Age: 6 Decade
  Sex: Male

DRUGS (5)
  1. FLUOXETINE [Concomitant]
     Active Substance: FLUOXETINE HYDROCHLORIDE
     Route: 048
     Dates: start: 20170718
  2. MOBIC [Suspect]
     Active Substance: MELOXICAM
     Indication: ARTHRALGIA
     Route: 048
  3. CLOZAPINE. [Concomitant]
     Active Substance: CLOZAPINE
     Route: 048
  4. DESMOPRESSIN ACETATE. [Interacting]
     Active Substance: DESMOPRESSIN ACETATE
     Route: 048
     Dates: start: 20171010
  5. LAMOTRIGINE. [Concomitant]
     Active Substance: LAMOTRIGINE
     Route: 048

REACTIONS (4)
  - Hyponatraemia [Recovering/Resolving]
  - Drug interaction [Unknown]
  - Fluid retention [Unknown]
  - Generalised tonic-clonic seizure [Recovered/Resolved]
